FAERS Safety Report 4494374-3 (Version None)
Quarter: 2004Q4

REPORT INFORMATION
  Report Type: 
  Country: None (occurrence: None)
  Receive Date: 20041102
  Receipt Date: 20041020
  Transmission Date: 20050328
  Serious: Yes (Hospitalization)
  Sender: FDA-Public Use
  Company Number: 2004080990

PATIENT
  Age: 67 Year
  Sex: Female

DRUGS (17)
  1. LIPITOR [Suspect]
     Indication: ILL-DEFINED DISORDER
     Dosage: 10 MG (1 IN 1 D), ORAL
     Route: 048
     Dates: end: 20041005
  2. ALLOPURINOL [Suspect]
     Indication: ILL-DEFINED DISORDER
     Dosage: 100 MG (1 IN 1 D), ORAL
     Route: 048
     Dates: end: 20041005
  3. AMLODIPINE [Suspect]
     Indication: ILL-DEFINED DISORDER
     Dosage: 7.5 MG (1 IN 1 D), ORAL
     Route: 048
     Dates: end: 20041005
  4. FERROUS FUMARATE (FERROUS SULFATE) [Suspect]
     Indication: ILL-DEFINED DISORDER
     Dosage: 305 MG (1 IN 1 D), ORAL
     Route: 048
     Dates: end: 20041005
  5. VALSARTAN (VALSARTAN) [Suspect]
     Indication: ILL-DEFINED DISORDER
     Dosage: 80 MG (1 IN 1 D), ORAL
     Route: 048
     Dates: end: 20041005
  6. CLOTIAZEPAM (CLOTIAZEPAM) [Suspect]
     Indication: ILL-DEFINED DISORDER
     Dosage: 15 MG (1 IN 1 D), ORAL
     Route: 048
     Dates: end: 20041005
  7. MECOBALAMIN (MECOBALAMIN) [Suspect]
     Indication: ILL-DEFINED DISORDER
     Dosage: 2.5 MG (1 IN 1 D), ORAL
     Route: 048
     Dates: end: 20041005
  8. ETHYL LOFLAZEPATE (ETHYL LOFLAZEPATE) [Suspect]
     Indication: ILL-DEFINED DISORDER
     Dosage: 1 MG ( 1 IN 1 D), ORAL
     Route: 048
     Dates: end: 20041005
  9. INVESTIGATIONAL DRUG (INVESTIGATIONAL DRUG) [Suspect]
     Indication: ILL-DEFINED DISORDER
     Dosage: (1 IN 2 WK), SUBCUTANEOUS
     Route: 058
     Dates: start: 20040929, end: 20041005
  10. ... [Concomitant]
  11. ... [Concomitant]
  12. ... [Concomitant]
  13. ... [Concomitant]
  14. ... [Concomitant]
  15. ... [Concomitant]
  16. ... [Concomitant]
  17. ... [Concomitant]

REACTIONS (4)
  - ALANINE AMINOTRANSFERASE INCREASED [None]
  - ASPARTATE AMINOTRANSFERASE INCREASED [None]
  - HEPATIC FUNCTION ABNORMAL [None]
  - PYREXIA [None]
